FAERS Safety Report 8224887-X (Version None)
Quarter: 2012Q1

REPORT INFORMATION
  Report Type: 
  Country: None (occurrence: None)
  Receive Date: 20120321
  Receipt Date: 20120216
  Transmission Date: 20120608
  Serious: Yes (Other)
  Sender: FDA-Public Use
  Company Number: US-ROCHE-1050660

PATIENT
  Sex: Female

DRUGS (3)
  1. PEGINTERFERON ALFA-2A [Suspect]
     Indication: HEPATITIS C
     Dates: start: 20111014
  2. COPEGUS [Suspect]
     Indication: HEPATITIS C
     Dates: start: 20111014
  3. BOCEPREVIR [Suspect]
     Indication: HEPATITIS C
     Dates: start: 20111111

REACTIONS (6)
  - DEHYDRATION [None]
  - CHROMATURIA [None]
  - ABDOMINAL DISCOMFORT [None]
  - COUGH [None]
  - DYSGEUSIA [None]
  - PNEUMONIA [None]
